FAERS Safety Report 4906846-5 (Version None)
Quarter: 2006Q1

REPORT INFORMATION
  Report Type: 
  Country: None (occurrence: None)
  Receive Date: 20060207
  Receipt Date: 20060127
  Transmission Date: 20060701
  Serious: Yes (Hospitalization, Other)
  Sender: FDA-Public Use
  Company Number: GBWYE532523MAR05

PATIENT
  Age: 67 Year
  Sex: Female

DRUGS (4)
  1. BISOPROLOL FUMARATE [Suspect]
     Indication: CARDIOVASCULAR DISORDER
     Dosage: 5 MG
  2. BUMETANIDE [Suspect]
     Indication: CARDIOVASCULAR DISORDER
     Dosage: 2MG
  3. ENALAPRIL [Suspect]
     Indication: CARDIOVASCULAR DISORDER
     Dosage: 10MG
  4. ISOSORBIDE MONONITRATE [Suspect]
     Indication: CARDIOVASCULAR DISORDER

REACTIONS (10)
  - BLOOD BICARBONATE DECREASED [None]
  - BLOOD PRESSURE DECREASED [None]
  - BRADYCARDIA [None]
  - DIALYSIS [None]
  - DIARRHOEA [None]
  - ELECTROCARDIOGRAM QRS COMPLEX PROLONGED [None]
  - HYPERKALAEMIA [None]
  - LOSS OF CONSCIOUSNESS [None]
  - RENAL FAILURE ACUTE [None]
  - SINOATRIAL BLOCK [None]
